FAERS Safety Report 7089296-8 (Version None)
Quarter: 2010Q4

REPORT INFORMATION
  Report Type: 
  Country: None (occurrence: None)
  Receive Date: 20101108
  Receipt Date: 20101101
  Transmission Date: 20110411
  Serious: Yes (Other)
  Sender: FDA-Public Use
  Company Number: NL-PFIZER INC-2010083276

PATIENT
  Age: 60 Year
  Sex: Female

DRUGS (5)
  1. LYRICA [Suspect]
     Indication: NEURALGIA
     Dosage: 150 MG, 2X/DAY
     Dates: start: 20050101
  2. LYRICA [Suspect]
     Dosage: 150 MG, 4X/DAY
     Dates: start: 20050101
  3. TRAMADOL [Concomitant]
     Dosage: UNK
     Dates: start: 20060101
  4. DICLOFENAC [Concomitant]
     Dosage: UNK
     Dates: start: 20060101
  5. PARACETAMOL [Concomitant]
     Dosage: UNK
     Dates: start: 20060101

REACTIONS (4)
  - DRUG TOLERANCE DECREASED [None]
  - GASTROINTESTINAL DISORDER [None]
  - PAIN [None]
  - SURGERY [None]
